FAERS Safety Report 9236760 (Version 1)
Quarter: 2013Q2

REPORT INFORMATION
  Report Type: Report from Study
  Country: US (occurrence: US)
  Receive Date: 20130417
  Receipt Date: 20130417
  Transmission Date: 20140414
  Serious: Yes (Other)
  Sender: FDA-Public Use
  Company Number: US-ROCHE-1200162

PATIENT
  Sex: Female

DRUGS (3)
  1. PEGASYS [Suspect]
     Indication: CHRONIC HEPATITIS C
     Route: 058
     Dates: start: 20130118
  2. RIBAPAK [Suspect]
     Indication: CHRONIC HEPATITIS C
     Dosage: DIVIDED DOSE
     Route: 048
     Dates: start: 20130118
  3. RIBAPAK [Suspect]
     Route: 048

REACTIONS (4)
  - Liver disorder [Unknown]
  - Asthenia [Unknown]
  - Anaemia [Unknown]
  - Hepatic fibrosis [Unknown]
